FAERS Safety Report 9809356 (Version 1)
Quarter: 2014Q1

REPORT INFORMATION
  Report Type: Spontaneous
  Country: US (occurrence: US)
  Receive Date: 20140110
  Receipt Date: 20140110
  Transmission Date: 20141002
  Serious: No
  Sender: FDA-Public Use
  Company Number: US-MALLINCKRODT-T201304701

PATIENT
  Age: 67 Year
  Sex: Male

DRUGS (3)
  1. OPTIRAY [Suspect]
     Indication: COMPUTERISED TOMOGRAM
     Dosage: 100 ML, SINGLE
     Route: 042
     Dates: start: 20131023, end: 20131023
  2. METFORMIN [Concomitant]
     Dosage: UNK
  3. PROTONIX [Concomitant]
     Dosage: UNK

REACTIONS (1)
  - Eye pruritus [Recovered/Resolved]
